FAERS Safety Report 5880590-2 (Version None)
Quarter: 2008Q3

REPORT INFORMATION
  Report Type: 
  Country: None (occurrence: None)
  Receive Date: 20080912
  Receipt Date: 20080616
  Transmission Date: 20090109
  Serious: No
  Sender: FDA-Public Use
  Company Number: US-ABBOTT-08P-163-0454963-00

PATIENT
  Sex: Male
  Weight: 86.26 kg

DRUGS (10)
  1. HUMIRA [Suspect]
     Indication: PSORIASIS
     Route: 058
     Dates: start: 20080602
  2. BENOCOR [Concomitant]
     Indication: HYPERTENSION
  3. METOPROLOL SUCCINATE [Concomitant]
     Indication: HYPERTENSION
  4. FISH OIL [Concomitant]
     Indication: BLOOD CHOLESTEROL
  5. MULTI-VITAMIN [Concomitant]
     Indication: DRUG USE FOR UNKNOWN INDICATION
  6. OCCUVITE [Concomitant]
     Indication: DRUG USE FOR UNKNOWN INDICATION
  7. FLAX SEED OIL [Concomitant]
     Indication: BLOOD CHOLESTEROL
  8. ACETYLSALICYLIC ACID SRT [Concomitant]
     Indication: CARDIAC DISORDER
  9. CETIRIZINE HYDROCHLORIDE [Concomitant]
     Indication: DRUG USE FOR UNKNOWN INDICATION
  10. DOXYCYCLINE [Concomitant]
     Indication: INFECTION PROPHYLAXIS
     Dosage: UNIT: 50 MILLIGRAMS - 100 MILLIGRAMS

REACTIONS (4)
  - INJECTION SITE HAEMATOMA [None]
  - INJECTION SITE PAIN [None]
  - INJECTION SITE PAPULE [None]
  - INJECTION SITE SWELLING [None]
